FAERS Safety Report 10211222 (Version 1)
Quarter: 2014Q2

REPORT INFORMATION
  Report Type: Spontaneous
  Country: ES (occurrence: ES)
  Receive Date: 20140602
  Receipt Date: 20140602
  Transmission Date: 20141212
  Serious: Yes (Other)
  Sender: FDA-Public Use
  Company Number: ES-WATSON-2014-11646

PATIENT
  Age: 35 Year
  Sex: Female

DRUGS (2)
  1. RISPERIDONE (UNKNOWN) [Suspect]
     Indication: PSYCHOTIC DISORDER
     Dosage: 9 MG, DAILY
     Route: 065
  2. ZUCLOPENTHIXOL [Suspect]
     Indication: PSYCHOTIC DISORDER
     Route: 030

REACTIONS (2)
  - Extrapyramidal disorder [Recovering/Resolving]
  - Amenorrhoea [Recovered/Resolved]
